FAERS Safety Report 7403595-9 (Version None)
Quarter: 2011Q2

REPORT INFORMATION
  Report Type: 
  Country: None (occurrence: None)
  Receive Date: 20110408
  Receipt Date: 20110405
  Transmission Date: 20111010
  Serious: Yes (Other)
  Sender: FDA-Public Use
  Company Number: PHHY2011GB23662

PATIENT
  Age: 48 Year
  Sex: Male

DRUGS (4)
  1. TEMAZEPAM [Concomitant]
     Dosage: 20 MG, QD
     Route: 048
  2. TEMAZEPAM [Concomitant]
     Indication: INSOMNIA
     Dosage: 10 MG, QD
     Route: 048
  3. AMPICILLIN SODIUM/SULBACTAM SODIUM [Suspect]
     Dosage: UNK
     Route: 048
     Dates: start: 20110124, end: 20110216
  4. CITALOPRAM [Concomitant]
     Indication: DEPRESSION
     Dosage: 20 MG, QD
     Route: 048

REACTIONS (1)
  - SUICIDAL IDEATION [None]
